FAERS Safety Report 18233068 (Version 1)
Quarter: 2020Q3

REPORT INFORMATION
  Report Type: Spontaneous
  Country: NO (occurrence: NO)
  Receive Date: 20200904
  Receipt Date: 20200904
  Transmission Date: 20201103
  Serious: Yes (Other)
  Sender: FDA-Public Use
  Company Number: NO-TEVA-2020-NO-1824512

PATIENT
  Age: 51 Year
  Sex: Female
  Weight: 67 kg

DRUGS (5)
  1. KESTINE [Concomitant]
     Active Substance: EBASTINE
     Dates: start: 20160101
  2. AJOVY [Suspect]
     Active Substance: FREMANEZUMAB-VFRM
     Indication: MIGRAINE
     Route: 065
     Dates: start: 20200413
  3. CATAPRESAN [Concomitant]
     Active Substance: CLONIDINE
     Dates: start: 20190301
  4. VITAMIN D [Concomitant]
     Active Substance: VITAMIN D NOS
  5. FEMARELLE [Concomitant]
     Dosage: FOR ACTIVE INGREDIENT LINSEED THE STRENGTH IS 108 MILLIGRAM .?FOR ACTIVE INGREDIENT SOYA?BEAN CONCEN

REACTIONS (7)
  - Libido decreased [Not Recovered/Not Resolved]
  - Pulse abnormal [Not Recovered/Not Resolved]
  - Myalgia [Not Recovered/Not Resolved]
  - Female orgasmic disorder [Not Recovered/Not Resolved]
  - Postmenopausal haemorrhage [Recovered/Resolved]
  - Alopecia [Not Recovered/Not Resolved]
  - Gingival bleeding [Not Recovered/Not Resolved]

NARRATIVE: CASE EVENT DATE: 20200517
